FAERS Safety Report 11767886 (Version 1)
Quarter: 2015Q4

REPORT INFORMATION
  Report Type: Spontaneous
  Country: US (occurrence: US)
  Receive Date: 20151123
  Receipt Date: 20151123
  Transmission Date: 20160304
  Serious: Yes (Hospitalization, Other)
  Sender: FDA-Public Use
  Company Number: US-TARO PHARMACEUTICALS USA.,INC-2015SUN02230

PATIENT
  Age: 49 Year
  Sex: Female

DRUGS (16)
  1. METOPROLOL TARTRATE. [Concomitant]
     Active Substance: METOPROLOL TARTRATE
     Dosage: UNK UNK, UNK
     Route: 065
  2. COMBINATION OF IBUPROFEN, GUAIFENESIN [Concomitant]
  3. LOMITAPIDE [Interacting]
     Active Substance: LOMITAPIDE MESYLATE
     Dosage: 5 MG, DAILY
  4. LOMITAPIDE [Interacting]
     Active Substance: LOMITAPIDE MESYLATE
     Dosage: 20 MG, DAILY
     Route: 065
  5. WARFARIN [Suspect]
     Active Substance: WARFARIN
     Indication: PRODUCT USED FOR UNKNOWN INDICATION
     Dosage: 4 MG, UNK
     Route: 065
  6. LOMITAPIDE [Interacting]
     Active Substance: LOMITAPIDE MESYLATE
     Indication: PRODUCT USED FOR UNKNOWN INDICATION
     Dosage: 0.03 MG/KG, DAILY
     Route: 065
  7. COLESEVELAM HYDROCHLORIDE [Concomitant]
     Active Substance: COLESEVELAM HYDROCHLORIDE
     Dosage: UNK UNK, UNK
     Route: 065
  8. ROBITUSSIN (GUAIFENESIN) [Concomitant]
     Active Substance: GUAIFENESIN
  9. ROSUVASTATIN CALCIUM. [Concomitant]
     Active Substance: ROSUVASTATIN CALCIUM
     Dosage: UNK UNK, UNK
     Route: 065
  10. ASPIRIN. [Concomitant]
     Active Substance: ASPIRIN
     Dosage: UNK UNK, UNK
     Route: 065
  11. LOMITAPIDE [Interacting]
     Active Substance: LOMITAPIDE MESYLATE
     Dosage: 10 MG, DAILY
  12. LOMITAPIDE [Interacting]
     Active Substance: LOMITAPIDE MESYLATE
     Dosage: 40 MG, DAILY
     Route: 065
  13. EZETIMIBE. [Concomitant]
     Active Substance: EZETIMIBE
     Dosage: UNK UNK, UNK
     Route: 065
  14. FERROUS SULFATE [Concomitant]
     Active Substance: FERROUS SULFATE\FERROUS SULFATE, DRIED
     Dosage: UNK UNK, UNK
     Route: 065
  15. LOMITAPIDE [Interacting]
     Active Substance: LOMITAPIDE MESYLATE
     Dosage: 60 MG, DAILY (ADJUSTED FOR LDL-C)
     Route: 065
  16. VICKS NYQUIL [Concomitant]
     Active Substance: ACETAMINOPHEN\DEXTROMETHORPHAN HYDROBROMIDE\DOXYLAMINE SUCCINATE

REACTIONS (5)
  - International normalised ratio increased [Recovered/Resolved]
  - Cerebral haemorrhage [Recovered/Resolved]
  - Cerebrovascular accident [Recovered/Resolved]
  - Drug interaction [Recovered/Resolved]
  - Subdural haematoma [Recovered/Resolved]
